FAERS Safety Report 7762533-X (Version None)
Quarter: 2011Q3

REPORT INFORMATION
  Report Type: 
  Country: None (occurrence: None)
  Receive Date: 20110920
  Receipt Date: 20110713
  Transmission Date: 20111222
  Serious: Yes (Hospitalization)
  Sender: FDA-Public Use
  Company Number: IT-AMGEN-ITACT2010004217

PATIENT
  Age: 2 Year
  Sex: Male

DRUGS (11)
  1. LEVOFOLENE [Concomitant]
     Dosage: 7.5 MG, 3 TIMES/WK
  2. CALCIUM CARBONATE [Concomitant]
     Dosage: 250 MG, TID
  3. CINACALCET HYDROCHLORIDE [Concomitant]
     Dosage: 5 MG, UNK
  4. DARBEPOETIN ALFA [Suspect]
     Indication: RENAL FAILURE CHRONIC
     Dosage: UNK
     Dates: start: 20091204
  5. MAGNESIUM HYDROXIDE TAB [Concomitant]
     Dosage: 6 MG, TID
  6. RANIDIL [Concomitant]
     Dosage: 2 MG, BID
  7. COUMADIN [Concomitant]
  8. KAYEXALATE [Concomitant]
     Dosage: 7.5 G, BID
  9. SODIUM BICARBONATE [Concomitant]
     Dosage: 2 MEQ, UNK
  10. DEDIOL [Concomitant]
     Dosage: 35 GTT, UNK
  11. NORVASC [Concomitant]

REACTIONS (1)
  - HYPERKALAEMIA [None]
